FAERS Safety Report 17002535 (Version 1)
Quarter: 2019Q4

REPORT INFORMATION
  Report Type: Report from Study
  Country: None (occurrence: US)
  Receive Date: 20191107
  Receipt Date: 20191107
  Transmission Date: 20200122
  Serious: Yes (Hospitalization, Other)
  Sender: FDA-Public Use
  Company Number: US-ABBVIE-19K-163-2989414-00

PATIENT
  Sex: Female

DRUGS (1)
  1. HUMIRA [Suspect]
     Active Substance: ADALIMUMAB
     Indication: RHEUMATOID ARTHRITIS
     Route: 058

REACTIONS (5)
  - Protein total decreased [Unknown]
  - Lupus-like syndrome [Unknown]
  - Weight increased [Not Recovered/Not Resolved]
  - Renal impairment [Not Recovered/Not Resolved]
  - Fluid retention [Not Recovered/Not Resolved]

NARRATIVE: CASE EVENT DATE: 2019
